FAERS Safety Report 17288371 (Version 1)
Quarter: 2020Q1

REPORT INFORMATION
  Report Type: Spontaneous
  Country: DE (occurrence: DE)
  Receive Date: 20200120
  Receipt Date: 20200120
  Transmission Date: 20200409
  Serious: Yes (Other)
  Sender: FDA-Public Use
  Company Number: DE-BIOFRONTERA-000631

PATIENT
  Age: 70 Year
  Sex: Male
  Weight: 120 kg

DRUGS (9)
  1. ELIQUIS [Concomitant]
     Active Substance: APIXABAN
  2. PICATO [Concomitant]
     Active Substance: INGENOL MEBUTATE
     Indication: ACTINIC KERATOSIS
     Dosage: 150 ?G/G GEL
     Route: 061
     Dates: start: 201905
  3. ALLOPURINOL 300 [Concomitant]
     Active Substance: ALLOPURINOL
  4. TORASEMID 1A PHARMA [Concomitant]
     Active Substance: TORSEMIDE
  5. BISOPROLOL ABZ [Concomitant]
     Active Substance: BISOPROLOL
  6. ACTINICA [Concomitant]
     Indication: ACTINIC KERATOSIS
     Route: 061
     Dates: start: 201905
  7. HYDROXYCARBAMID HEXAL 500 [Concomitant]
  8. AMELUZ [Suspect]
     Active Substance: AMINOLEVULINIC ACID HYDROCHLORIDE
     Indication: ACTINIC KERATOSIS
     Route: 061
     Dates: start: 20190707, end: 20190707
  9. VALSACOR [Concomitant]
     Active Substance: VALSARTAN

REACTIONS (2)
  - Squamous cell carcinoma of skin [Not Recovered/Not Resolved]
  - Basal cell carcinoma [Not Recovered/Not Resolved]
